FAERS Safety Report 15287281 (Version 1)
Quarter: 2018Q3

REPORT INFORMATION
  Report Type: Spontaneous
  Country: US (occurrence: US)
  Receive Date: 20180817
  Receipt Date: 20180817
  Transmission Date: 20181010
  Serious: No
  Sender: FDA-Public Use
  Company Number: US-ELI_LILLY_AND_COMPANY-US201807014138

PATIENT
  Sex: Female

DRUGS (4)
  1. HUMULIN N [Suspect]
     Active Substance: INSULIN HUMAN
     Indication: TYPE 1 DIABETES MELLITUS
     Dosage: 9 U, BID
     Route: 058
     Dates: start: 199307
  2. HUMULIN R [Suspect]
     Active Substance: INSULIN HUMAN
     Indication: TYPE 1 DIABETES MELLITUS
     Dosage: UNK UNK, PRN TWICE DAILY
     Route: 058
     Dates: start: 199307
  3. HUMULIN N [Suspect]
     Active Substance: INSULIN HUMAN
     Dosage: 9 U, BID
     Route: 058
  4. HUMULIN R [Suspect]
     Active Substance: INSULIN HUMAN
     Dosage: UNK UNK, PRN TWICE DAILY
     Route: 058

REACTIONS (4)
  - Back pain [Not Recovered/Not Resolved]
  - Incorrect drug administration duration [Unknown]
  - Spinal fracture [Recovered/Resolved]
  - Blood glucose increased [Not Recovered/Not Resolved]

NARRATIVE: CASE EVENT DATE: 2014
